FAERS Safety Report 9786604 (Version 1)
Quarter: 2013Q4

REPORT INFORMATION
  Report Type: Spontaneous
  Country: BR (occurrence: BR)
  Receive Date: 20131227
  Receipt Date: 20131227
  Transmission Date: 20140711
  Serious: Yes (Other)
  Sender: FDA-Public Use
  Company Number: PHHY2013BR151233

PATIENT
  Age: 56 Year
  Sex: Male
  Weight: 170 kg

DRUGS (1)
  1. ATENOLOL [Suspect]
     Indication: BLOOD PRESSURE INCREASED
     Route: 048

REACTIONS (5)
  - Gout [Not Recovered/Not Resolved]
  - Arthralgia [Not Recovered/Not Resolved]
  - Joint swelling [Not Recovered/Not Resolved]
  - Pain in extremity [Not Recovered/Not Resolved]
  - Weight decreased [Unknown]
